FAERS Safety Report 7626087-0 (Version None)
Quarter: 2011Q3

REPORT INFORMATION
  Report Type: 
  Country: None (occurrence: None)
  Receive Date: 20110713
  Receipt Date: 20110705
  Transmission Date: 20111222
  Serious: Yes (Hospitalization, Other)
  Sender: FDA-Public Use
  Company Number: 2011001998

PATIENT
  Age: 61 Year
  Sex: Male
  Weight: 108 kg

DRUGS (7)
  1. CELEXA [Concomitant]
  2. LORTAB (VICODIN) [Concomitant]
  3. HYDROCODONE (HYDROCODONE) [Concomitant]
  4. TOPROL-XL [Concomitant]
  5. DOXYCYCLINE [Concomitant]
  6. ERLOTINIB HYDROCHLORIDE [Suspect]
     Indication: SQUAMOUS CELL CARCINOMA OF SKIN
     Dosage: 150 MG, UID/QD, ORAL
     Route: 048
     Dates: start: 20110412, end: 20110401
  7. CHLORPHENIRAMINE W/HYDROCODONE (CHLORPHENAMINE, HYDROCODONE) [Concomitant]

REACTIONS (33)
  - PULMONARY HYPERTENSION [None]
  - DIPLOPIA [None]
  - VISION BLURRED [None]
  - NECROSIS [None]
  - PNEUMOTHORAX [None]
  - SQUAMOUS CELL CARCINOMA [None]
  - VISUAL ACUITY REDUCED [None]
  - CHRONIC OBSTRUCTIVE PULMONARY DISEASE [None]
  - ANAEMIA [None]
  - CHOLELITHIASIS [None]
  - METASTASES TO LUNG [None]
  - HYPERTENSIVE HEART DISEASE [None]
  - NEOPLASM PROGRESSION [None]
  - PNEUMONIA [None]
  - RASH [None]
  - FATIGUE [None]
  - HEART RATE INCREASED [None]
  - ATELECTASIS [None]
  - HEPATIC STEATOSIS [None]
  - SUPRAVENTRICULAR TACHYCARDIA [None]
  - ASTHENIA [None]
  - EYE PAIN [None]
  - ATRIAL FIBRILLATION [None]
  - ASPARTATE AMINOTRANSFERASE INCREASED [None]
  - ALANINE AMINOTRANSFERASE INCREASED [None]
  - SYNCOPE [None]
  - RENAL CYST [None]
  - HEPATIC ENZYME INCREASED [None]
  - DIZZINESS [None]
  - HAEMOGLOBIN DECREASED [None]
  - HYPONATRAEMIA [None]
  - PLEURAL EFFUSION [None]
  - ORTHOSTATIC HYPOTENSION [None]
